FAERS Safety Report 4378716-5 (Version None)
Quarter: 2004Q2

REPORT INFORMATION
  Report Type: 
  Country: None (occurrence: None)
  Receive Date: 20040609
  Receipt Date: 20040413
  Transmission Date: 20050107
  Serious: Yes (Hospitalization)
  Sender: FDA-Public Use
  Company Number: A02200401315

PATIENT
  Age: 72 Year
  Sex: Male

DRUGS (11)
  1. KARDEGIC - (ACETYLSALICYLATE LYSINE) - POWDER - 75 MG [Suspect]
     Dosage: 75 MG OD, ORAL
     Route: 048
  2. KERLONE [Suspect]
     Dosage: 20 MG OD, ORAL
     Route: 048
  3. TOPLEXIL ^RHONE-POULENC^ - (OXOMEMAZINE) - SYRUP [Suspect]
     Dosage: ORAL
     Route: 048
  4. LORAZEPAM [Suspect]
     Dosage: 0.5 MG OD, ORAL
     Route: 048
  5. OMEPRAZOLE [Suspect]
     Dosage: 20 MG OD, ORAL
     Route: 048
  6. PRAVASTATIN SODIUM [Suspect]
     Dosage: 20 MG OD, ORAL
     Route: 048
  7. BRONCHOKOD (CARBOCISTEINE) [Concomitant]
  8. ACETAMINOPHEN [Concomitant]
  9. ATROVENT [Concomitant]
  10. ETIOVEN (NAFTAZONE) [Concomitant]
  11. VASTAREL (TRIMETAZIDINE HYDROCHLORIDE) [Concomitant]

REACTIONS (9)
  - ARTHRALGIA [None]
  - AUTOIMMUNE DISORDER [None]
  - CARDIOLIPIN ANTIBODY POSITIVE [None]
  - EOSINOPHIL COUNT INCREASED [None]
  - GAMMA-GLUTAMYLTRANSFERASE INCREASED [None]
  - LIP ULCERATION [None]
  - LYMPHADENOPATHY [None]
  - TONGUE ULCERATION [None]
  - TOXIC SKIN ERUPTION [None]
